FAERS Safety Report 14325408 (Version 1)
Quarter: 2017Q4

REPORT INFORMATION
  Report Type: Report from Study
  Country: CN (occurrence: CN)
  Receive Date: 20171226
  Receipt Date: 20171226
  Transmission Date: 20180321
  Serious: Yes (Other)
  Sender: FDA-Public Use
  Company Number: CN-MYLANLABS-2017M1081659

PATIENT
  Sex: Female
  Weight: 2.3 kg

DRUGS (4)
  1. PACLITAXEL. [Suspect]
     Active Substance: PACLITAXEL
     Indication: NEOADJUVANT THERAPY
     Dosage: 80 MG/M2 ON DAY 1, 8 AND 15; CYCLED EVERY 21 DAYS.
     Route: 064
  2. PACLITAXEL. [Suspect]
     Active Substance: PACLITAXEL
     Indication: INTRADUCTAL PROLIFERATIVE BREAST LESION
  3. EPIRUBICIN [Suspect]
     Active Substance: EPIRUBICIN
     Indication: NEOADJUVANT THERAPY
     Dosage: 80 MG/M2 ON DAY 1; CYCLED EVERY 21 DAYS.
     Route: 064
  4. EPIRUBICIN [Suspect]
     Active Substance: EPIRUBICIN
     Indication: INTRADUCTAL PROLIFERATIVE BREAST LESION

REACTIONS (3)
  - Foetal exposure during pregnancy [Recovered/Resolved]
  - Premature baby [Unknown]
  - Jaundice neonatal [Recovered/Resolved]
